FAERS Safety Report 8407244-2 (Version None)
Quarter: 2012Q2

REPORT INFORMATION
  Report Type: 
  Country: None (occurrence: None)
  Receive Date: 20120529
  Receipt Date: 20120515
  Transmission Date: 20120825
  Serious: Yes (Congenital Anomaly, Other)
  Sender: FDA-Public Use
  Company Number: 2012MA006226

PATIENT

DRUGS (1)
  1. EPIRUBICIN HYDROCHLORIDE [Suspect]
     Indication: FOETAL EXPOSURE DURING PREGNANCY
     Dosage: Q3W

REACTIONS (2)
  - CONGENITAL VESICOURETERIC REFLUX [None]
  - MATERNAL DRUGS AFFECTING FOETUS [None]
